FAERS Safety Report 4339518-9 (Version None)
Quarter: 2004Q2

REPORT INFORMATION
  Report Type: 
  Country: None (occurrence: None)
  Receive Date: 20040415
  Receipt Date: 20040309
  Transmission Date: 20050107
  Serious: Yes (Hospitalization)
  Sender: FDA-Public Use
  Company Number: PHNR2004AU00750

PATIENT
  Age: 25 Year
  Sex: Male

DRUGS (1)
  1. CLOZARIL [Suspect]
     Indication: SCHIZOPHRENIA
     Dosage: 12.5 - 400 MG/DAY
     Route: 048
     Dates: start: 20031111

REACTIONS (3)
  - GROIN PAIN [None]
  - MALIGNANT NEOPLASM PROGRESSION [None]
  - TESTIS CANCER [None]
